FAERS Safety Report 7436288-2 (Version None)
Quarter: 2011Q2

REPORT INFORMATION
  Report Type: 
  Country: None (occurrence: None)
  Receive Date: 20110426
  Receipt Date: 20110414
  Transmission Date: 20111010
  Serious: Yes (Hospitalization)
  Sender: FDA-Public Use
  Company Number: US-US-EMD SERONO, INC.-7053991

PATIENT
  Sex: Female
  Weight: 92 kg

DRUGS (5)
  1. REBIF [Suspect]
     Indication: PRODUCT USED FOR UNKNOWN INDICATION
     Route: 058
  2. REBIF [Suspect]
     Route: 058
  3. GABAPENTIN [Concomitant]
  4. TOPAMAX [Concomitant]
  5. REBIF [Suspect]
     Route: 058
     Dates: start: 20110317

REACTIONS (8)
  - PLEURISY [None]
  - FATIGUE [None]
  - PAIN [None]
  - INTERVERTEBRAL DISC PROTRUSION [None]
  - RAYNAUD'S PHENOMENON [None]
  - INJECTION SITE VESICLES [None]
  - CHILLS [None]
  - INJECTION SITE ERYTHEMA [None]
